FAERS Safety Report 17524189 (Version 1)
Quarter: 2020Q1

REPORT INFORMATION
  Report Type: Spontaneous
  Country: US (occurrence: US)
  Receive Date: 20200310
  Receipt Date: 20200310
  Transmission Date: 20200409
  Serious: Yes (Disabling, Other)
  Sender: FDA-Public Use
  Company Number: US-BIODELIVERY SCIENCES INTERNATIONAL-2020BDSI0212

PATIENT
  Sex: Female

DRUGS (1)
  1. BUPRENORPHINE. [Suspect]
     Active Substance: BUPRENORPHINE
     Indication: PRODUCT USED FOR UNKNOWN INDICATION
     Dosage: UNKNOWN; UNKNOWN
     Route: 002

REACTIONS (8)
  - Drug dependence [Unknown]
  - Amnesia [Unknown]
  - Personality change [Unknown]
  - Visual impairment [Unknown]
  - Irritability [Unknown]
  - Depressed mood [Unknown]
  - Pain [Unknown]
  - Anger [Unknown]
